FAERS Safety Report 21620828 (Version 1)
Quarter: 2022Q4

REPORT INFORMATION
  Report Type: Spontaneous
  Country: CA (occurrence: None)
  Receive Date: 20221121
  Receipt Date: 20221121
  Transmission Date: 20230112
  Serious: Yes (Other)
  Sender: FDA-Public Use
  Company Number: CA-PFIZER INC-202201307488

PATIENT
  Age: 48 Year
  Sex: Male

DRUGS (1)
  1. METHOTREXATE [Suspect]
     Active Substance: METHOTREXATE
     Indication: Cutaneous sarcoidosis
     Route: 065
     Dates: start: 2018

REACTIONS (2)
  - Nodule [Not Recovered/Not Resolved]
  - Product use in unapproved indication [Unknown]
